FAERS Safety Report 13550232 (Version 1)
Quarter: 2017Q2

REPORT INFORMATION
  Report Type: Spontaneous
  Country: US (occurrence: US)
  Receive Date: 20170516
  Receipt Date: 20170516
  Transmission Date: 20170830
  Serious: No
  Sender: FDA-Public Use
  Company Number: US-BAYER-2017-092373

PATIENT
  Age: 84 Year
  Sex: Female
  Weight: 79 kg

DRUGS (7)
  1. PROBIOTICA [Concomitant]
     Active Substance: PROBIOTICS NOS
  2. MIRALAX [Suspect]
     Active Substance: POLYETHYLENE GLYCOL 3350
     Indication: GASTROINTESTINAL DISORDER
     Dosage: UNK, QD
     Route: 048
  3. FISH OIL [Concomitant]
     Active Substance: FISH OIL
  4. ZOCOR [Concomitant]
     Active Substance: SIMVASTATIN
  5. CRANBERRY. [Concomitant]
     Active Substance: CRANBERRY
  6. CALCIUM +VIT D [Concomitant]
     Active Substance: CALCIUM\VITAMIN D
  7. GABAPENTIN. [Concomitant]
     Active Substance: GABAPENTIN

REACTIONS (2)
  - Incorrect drug administration duration [Unknown]
  - Diarrhoea [Recovered/Resolved]

NARRATIVE: CASE EVENT DATE: 20170428
